FAERS Safety Report 14753391 (Version 2)
Quarter: 2018Q2

REPORT INFORMATION
  Report Type: Spontaneous
  Country: NL (occurrence: NL)
  Receive Date: 20180412
  Receipt Date: 20180509
  Transmission Date: 20180711
  Serious: Yes (Hospitalization)
  Sender: FDA-Public Use
  Company Number: NL-TEVA-2018-NL-881402

PATIENT
  Age: 75 Year
  Sex: Female
  Weight: 83.5 kg

DRUGS (11)
  1. ALPRAZOLAM. [Concomitant]
     Active Substance: ALPRAZOLAM
     Indication: FEELING OF RELAXATION
     Route: 048
     Dates: start: 2000
  2. ALPRAZOLAM. [Concomitant]
     Active Substance: ALPRAZOLAM
     Indication: SLEEP DISORDER
  3. HUMIRA [Concomitant]
     Active Substance: ADALIMUMAB
  4. BETAHISTINE [Suspect]
     Active Substance: BETAHISTINE
     Indication: DIZZINESS
     Route: 048
     Dates: start: 201711
  5. XANAX [Concomitant]
     Active Substance: ALPRAZOLAM
     Indication: FEELING OF RELAXATION
  6. NOZINAN [Concomitant]
     Active Substance: LEVOMEPROMAZINE
     Route: 048
     Dates: start: 2000
  7. OXYCODON [Suspect]
     Active Substance: OXYCODONE
     Indication: DIZZINESS
     Dosage: 3 X 10 MG
     Route: 048
     Dates: start: 201801
  8. MACROGOL RATIOPHARM [Suspect]
     Active Substance: POLYETHYLENE GLYCOL 3350\POTASSIUM CHLORIDE\SODIUM BICARBONATE\SODIUM CHLORIDE
     Route: 065
  9. XANAX [Concomitant]
     Active Substance: ALPRAZOLAM
     Indication: SLEEP DISORDER
  10. REMERON [Concomitant]
     Active Substance: MIRTAZAPINE
     Indication: ABDOMINAL DISCOMFORT
     Route: 048
     Dates: start: 1995
  11. GENTAMICINE [Concomitant]
     Active Substance: GENTAMICIN

REACTIONS (11)
  - Hypertension [Unknown]
  - Nervousness [Unknown]
  - Ill-defined disorder [Unknown]
  - Arrhythmia [Unknown]
  - Delusion [Recovered/Resolved]
  - Urinary retention [Recovered/Resolved]
  - Stress [Unknown]
  - Balance disorder [Unknown]
  - Head discomfort [Unknown]
  - Hypersensitivity [Unknown]
  - Product substitution issue [Unknown]

NARRATIVE: CASE EVENT DATE: 201801
